FAERS Safety Report 13338633 (Version 1)
Quarter: 2017Q1

REPORT INFORMATION
  Report Type: Spontaneous
  Country: AU (occurrence: AU)
  Receive Date: 20170315
  Receipt Date: 20170315
  Transmission Date: 20170428
  Serious: Yes (Death)
  Sender: FDA-Public Use
  Company Number: AU-PFIZER INC-2017113628

PATIENT

DRUGS (4)
  1. ALPRAZOLAM. [Suspect]
     Active Substance: ALPRAZOLAM
     Indication: DEPRESSION
     Dosage: 1-2 MG, DAILY
     Route: 064
  2. PIMOZIDE. [Suspect]
     Active Substance: PIMOZIDE
     Indication: DEPRESSION
     Dosage: 1-2 MG, DAILY
     Route: 064
  3. DIAZEPAM. [Suspect]
     Active Substance: DIAZEPAM
     Indication: DEPRESSION
     Dosage: 5-10 MG, DAILY
     Route: 064
  4. TRANYLCYPROMINE [Suspect]
     Active Substance: TRANYLCYPROMINE
     Indication: DEPRESSION
     Dosage: UNK, DAILY HIGH DOSE (BETWEEN 100 MG AND 130 MG)
     Route: 064

REACTIONS (4)
  - Maternal exposure during pregnancy [Fatal]
  - Atrioventricular septal defect [Fatal]
  - Hypertelorism of orbit [Fatal]
  - Dysmorphism [Fatal]
